FAERS Safety Report 20876336 (Version 2)
Quarter: 2022Q2

REPORT INFORMATION
  Report Type: Spontaneous
  Country: US (occurrence: US)
  Receive Date: 20220526
  Receipt Date: 20220531
  Transmission Date: 20220721
  Serious: No
  Sender: FDA-Public Use
  Company Number: US-UNITED THERAPEUTICS-UNT-2022-011332

PATIENT
  Age: 77 Year
  Sex: Male
  Weight: 87.075 kg

DRUGS (2)
  1. TYVASO [Suspect]
     Active Substance: TREPROSTINIL
     Indication: Pulmonary arterial hypertension
     Dosage: UNK
     Dates: start: 20211025
  2. TYVASO [Suspect]
     Active Substance: TREPROSTINIL
     Dosage: 18-72 ?G, QID

REACTIONS (6)
  - Rhinorrhoea [Unknown]
  - Stress [Unknown]
  - Bladder disorder [Unknown]
  - Blood pressure systolic increased [Unknown]
  - Seasonal allergy [Unknown]
  - Pain [Unknown]

NARRATIVE: CASE EVENT DATE: 20220518
